FAERS Safety Report 11821864 (Version 2)
Quarter: 2016Q1

REPORT INFORMATION
  Report Type: Spontaneous
  Country: US (occurrence: US)
  Receive Date: 20151210
  Receipt Date: 20160202
  Transmission Date: 20160525
  Serious: No
  Sender: FDA-Public Use
  Company Number: US-JNJFOC-20150714276

PATIENT
  Age: 89 Year
  Sex: Female

DRUGS (3)
  1. ZINC [Concomitant]
     Active Substance: ZINC\ZINC CHLORIDE
  2. IMBRUVICA [Suspect]
     Active Substance: IBRUTINIB
     Indication: ACUTE LYMPHOCYTIC LEUKAEMIA (IN REMISSION)
     Route: 048
     Dates: start: 20140607, end: 2015
  3. IMBRUVICA [Suspect]
     Active Substance: IBRUTINIB
     Indication: CHRONIC LYMPHOCYTIC LEUKAEMIA
     Route: 048
     Dates: start: 20140607, end: 2015

REACTIONS (5)
  - Incorrect dose administered [Not Recovered/Not Resolved]
  - Diarrhoea [Unknown]
  - Joint swelling [Unknown]
  - Back pain [Unknown]
  - Headache [Unknown]

NARRATIVE: CASE EVENT DATE: 20140607
